FAERS Safety Report 7466831-9 (Version None)
Quarter: 2011Q2

REPORT INFORMATION
  Report Type: 
  Country: None (occurrence: None)
  Receive Date: 20110509
  Receipt Date: 20100901
  Transmission Date: 20111010
  Serious: No
  Sender: FDA-Public Use
  Company Number: US-ALEXION-A201001114

PATIENT
  Sex: Female

DRUGS (11)
  1. SOLIRIS [Suspect]
     Dosage: 900 MG, Q2W
     Route: 042
     Dates: start: 20100817
  2. COUMADIN [Concomitant]
     Dosage: 7.5 MG, QD
     Route: 048
  3. AMBIEN [Concomitant]
     Dosage: 10 MG, QHS
     Route: 048
  4. METHIMAZOLE [Concomitant]
     Dosage: 10 MG, QD
     Route: 048
  5. SOLIRIS [Suspect]
     Dosage: 600 MG, QW
     Route: 042
     Dates: start: 20101123
  6. CYMBALTA [Concomitant]
     Dosage: 60 MG, QD
     Route: 048
  7. SOLIRIS [Suspect]
     Dosage: 1200 MG, Q2W
     Route: 042
     Dates: start: 20101109, end: 20101101
  8. ATIVAN [Concomitant]
     Dosage: 1 MG, UNK
     Route: 048
  9. ORTHO EVRA [Concomitant]
     Dosage: 150 MG, UNK
     Route: 061
  10. SOLIRIS [Suspect]
     Indication: PAROXYSMAL NOCTURNAL HAEMOGLOBINURIA
     Dosage: 600 MG, QWX4
     Route: 042
     Dates: start: 20100720, end: 20100810
  11. TALWIN                             /00052101/ [Concomitant]
     Dosage: 50-0.5 Q3-4H PRN

REACTIONS (6)
  - RED BLOOD CELL COUNT DECREASED [None]
  - HAEMATOCRIT DECREASED [None]
  - HAEMOGLOBIN DECREASED [None]
  - DRUG INEFFECTIVE [None]
  - HAEMOLYSIS [None]
  - HEADACHE [None]
